FAERS Safety Report 6153632-7 (Version None)
Quarter: 2009Q2

REPORT INFORMATION
  Report Type: 
  Country: None (occurrence: None)
  Receive Date: 20090409
  Receipt Date: 20090325
  Transmission Date: 20091009
  Serious: Yes (Other)
  Sender: FDA-Public Use
  Company Number: 2009S1005187

PATIENT
  Age: 75 Year
  Sex: Female

DRUGS (2)
  1. GENOX (TAMOXIFEN) (20 MG) [Suspect]
     Indication: BREAST CANCER
     Dosage: 20 MG;DAILY;ORAL
     Route: 048
     Dates: start: 20090126, end: 20090204
  2. FISH OIL [Concomitant]

REACTIONS (5)
  - ASTHENIA [None]
  - BLOOD CHOLESTEROL INCREASED [None]
  - CHILLS [None]
  - HEPATIC STEATOSIS [None]
  - PYREXIA [None]
